FAERS Safety Report 9365821 (Version 4)
Quarter: 2013Q3

REPORT INFORMATION
  Report Type: Report from Study
  Country: DE (occurrence: DE)
  Receive Date: 20130625
  Receipt Date: 20130725
  Transmission Date: 20140515
  Serious: Yes (Death)
  Sender: FDA-Public Use
  Company Number: PHHY2013DE064062

PATIENT
  Sex: Female
  Weight: 90 kg

DRUGS (10)
  1. ICL670A [Suspect]
     Indication: ACUTE MYELOID LEUKAEMIA
     Dosage: 500 MG, BID
     Route: 048
     Dates: start: 20120731
  2. BISOPROLOL [Concomitant]
     Dosage: 5 MG, QD
     Dates: start: 20000101
  3. ATACAND [Concomitant]
     Dosage: 4 MG, QD
     Dates: start: 20000101
  4. TOREM [Concomitant]
     Dosage: 10 MG, QD
     Dates: start: 20120101
  5. SPIRONOLACTON [Concomitant]
     Dosage: 50 MG, QD
     Dates: start: 20000101
  6. ASS [Concomitant]
     Dosage: 100 MG, QD
     Dates: start: 20000101
  7. PREDNISOLON [Concomitant]
     Dosage: 5 MG, QD
     Dates: start: 20120301
  8. CITALOPRAM [Concomitant]
     Dosage: 20 MG, QD
     Dates: start: 20120301
  9. L-THYROXIN [Concomitant]
     Dosage: 50 UG, QD
     Dates: start: 20000101
  10. PANTOPRAZOLE [Concomitant]
     Dosage: 40 MG, QD
     Dates: start: 20120301

REACTIONS (1)
  - Death [Fatal]
